FAERS Safety Report 16499341 (Version 13)
Quarter: 2020Q4

REPORT INFORMATION
  Report Type: Report from Study
  Country: US (occurrence: US)
  Receive Date: 20190701
  Receipt Date: 20201017
  Transmission Date: 20210113
  Serious: Yes (Hospitalization)
  Sender: FDA-Public Use
  Company Number: PHEH2019US027654

PATIENT
  Age: 38 Year
  Sex: Female
  Weight: 61.22 kg

DRUGS (6)
  1. TREPROSTINIL. [Suspect]
     Active Substance: TREPROSTINIL
     Dosage: 50 NG/KG/MIN,CONTINUOUS
     Route: 042
     Dates: start: 20190619
  2. TREPROSTINIL. [Suspect]
     Active Substance: TREPROSTINIL
     Dosage: 52 NG/KG/MIN, CONTINUOUS
     Route: 042
  3. TREPROSTINIL. [Suspect]
     Active Substance: TREPROSTINIL
     Dosage: 78 NG/KG/MIN,CONTINUOUS
     Route: 042
  4. ELIQUIS [Concomitant]
     Active Substance: APIXABAN
     Indication: PRODUCT USED FOR UNKNOWN INDICATION
     Dosage: UNK
     Route: 065
  5. TREPROSTINIL. [Suspect]
     Active Substance: TREPROSTINIL
     Indication: PULMONARY ARTERIAL HYPERTENSION
     Dosage: 44 NG/KG/MIN, CONTINUOUS
     Route: 042
     Dates: start: 20190619
  6. OPSUMIT [Concomitant]
     Active Substance: MACITENTAN
     Indication: PRODUCT USED FOR UNKNOWN INDICATION
     Dosage: UNK
     Route: 065

REACTIONS (18)
  - Vascular device infection [Unknown]
  - Back pain [Unknown]
  - Hypoaesthesia [Unknown]
  - Catheter site pain [Unknown]
  - Dyspnoea exertional [Unknown]
  - Injection site discharge [Unknown]
  - Vitreous floaters [Unknown]
  - Chest pain [Unknown]
  - Pain in extremity [Unknown]
  - Pain [Unknown]
  - Headache [Unknown]
  - Dyspnoea [Not Recovered/Not Resolved]
  - Musculoskeletal stiffness [Unknown]
  - Diarrhoea [Unknown]
  - Catheter site pruritus [Unknown]
  - Pain in jaw [Unknown]
  - Dyspnoea [Recovered/Resolved]
  - Complication associated with device [Unknown]

NARRATIVE: CASE EVENT DATE: 20191028
